FAERS Safety Report 16919088 (Version 1)
Quarter: 2019Q4

REPORT INFORMATION
  Report Type: Spontaneous
  Country: NL (occurrence: NL)
  Receive Date: 20191015
  Receipt Date: 20191015
  Transmission Date: 20200122
  Serious: Yes (Other)
  Sender: FDA-Public Use
  Company Number: NL-MYLANLABS-2019M1095727

PATIENT
  Sex: Female

DRUGS (1)
  1. LISINOPRIL MYLAN [Suspect]
     Active Substance: LISINOPRIL
     Indication: PRODUCT USED FOR UNKNOWN INDICATION

REACTIONS (5)
  - Malaise [Unknown]
  - Blood glucose increased [Unknown]
  - Product substitution issue [Unknown]
  - Transient ischaemic attack [Unknown]
  - Gait disturbance [Unknown]
